FAERS Safety Report 24618729 (Version 1)
Quarter: 2024Q4

REPORT INFORMATION
  Report Type: Spontaneous
  Country: US (occurrence: US)
  Receive Date: 20241114
  Receipt Date: 20241114
  Transmission Date: 20250115
  Serious: Yes (Other)
  Sender: AMGEN
  Company Number: US-AMGEN-USASP2024222564

PATIENT
  Age: 39 Year
  Sex: Female

DRUGS (5)
  1. VECTIBIX [Suspect]
     Active Substance: PANITUMUMAB
     Indication: Product used for unknown indication
     Dosage: 100 MILLIGRAM, Q2WK (5ML (20 MG/ML)
     Route: 065
  2. VECTIBIX [Suspect]
     Active Substance: PANITUMUMAB
     Dosage: 334 MILLIGRAM, Q2WK (0.9% 100 ML (3.44 MG/ML) CHEMO IVBP 344MG) (DOSE INCREASED)
     Route: 065
  3. IRINOTECAN [Suspect]
     Active Substance: IRINOTECAN
     Indication: Product used for unknown indication
     Dosage: UNK
     Route: 065
  4. FLUOROURACIL [Suspect]
     Active Substance: FLUOROURACIL
     Indication: Product used for unknown indication
     Dosage: 3500 MILLIGRAM
     Route: 065
  5. LEUCOVORIN [Suspect]
     Active Substance: LEUCOVORIN\LEUCOVORIN CALCIUM
     Indication: Product used for unknown indication
     Dosage: UNK
     Route: 065

REACTIONS (16)
  - Carcinoembryonic antigen increased [Unknown]
  - Acne pustular [Unknown]
  - Tenderness [Unknown]
  - Metabolic function test abnormal [Unknown]
  - Platelet count increased [Unknown]
  - Protein total decreased [Unknown]
  - Neutrophil count abnormal [Unknown]
  - Constipation [Unknown]
  - Oedema peripheral [Unknown]
  - Diarrhoea [Unknown]
  - Nausea [Unknown]
  - Blood potassium decreased [Unknown]
  - Decreased appetite [Unknown]
  - Fatigue [Unknown]
  - Pruritus [Unknown]
  - Dermatitis acneiform [Unknown]

NARRATIVE: CASE EVENT DATE: 20241030
